FAERS Safety Report 25962262 (Version 3)
Quarter: 2025Q4

REPORT INFORMATION
  Report Type: Spontaneous
  Country: MX (occurrence: MX)
  Receive Date: 20251027
  Receipt Date: 20251209
  Transmission Date: 20260117
  Serious: Yes (Other)
  Sender: NOVO NORDISK
  Company Number: MX-NOVOPROD-1544081

PATIENT
  Sex: Female
  Weight: 66 kg

DRUGS (3)
  1. RYBELSUS [Suspect]
     Active Substance: SEMAGLUTIDE
     Indication: Diabetes mellitus
     Dosage: UNK, MG
     Route: 048
     Dates: start: 202401
  2. RYBELSUS [Suspect]
     Active Substance: SEMAGLUTIDE
     Indication: Hepatic steatosis
     Dosage: 7 MG
     Route: 048
     Dates: end: 202507
  3. ILTUX2HCT [Concomitant]
     Indication: Hypertension
     Dosage: 40/12.5 MG

REACTIONS (4)
  - Ulcer [Recovering/Resolving]
  - Pain [Recovering/Resolving]
  - Abdominal pain upper [Recovering/Resolving]
  - Abdominal discomfort [Recovering/Resolving]

NARRATIVE: CASE EVENT DATE: 20250701
